FAERS Safety Report 9413306 (Version 2)
Quarter: 2013Q3

REPORT INFORMATION
  Report Type: Spontaneous
  Country: JP (occurrence: JP)
  Receive Date: 20130722
  Receipt Date: 20130910
  Transmission Date: 20140515
  Serious: Yes (Other)
  Sender: FDA-Public Use
  Company Number: JP-NAPPMUNDI-GBR-2013-0015036

PATIENT
  Age: 80 Year
  Sex: Male

DRUGS (2)
  1. OXYCODONE HCL PR TABLET [Suspect]
     Indication: CANCER PAIN
     Dosage: 80 MG, DAILY
     Route: 048
     Dates: start: 201306, end: 20130619
  2. OXYCODONE HCL PR TABLET [Suspect]
     Dosage: 60 MG, DAILY
     Route: 048
     Dates: start: 20130620, end: 20130621

REACTIONS (1)
  - Delirium [Recovering/Resolving]
